FAERS Safety Report 13245455 (Version 1)
Quarter: 2017Q1

REPORT INFORMATION
  Report Type: Spontaneous
  Country: FR (occurrence: FR)
  Receive Date: 20170217
  Receipt Date: 20170217
  Transmission Date: 20170428
  Serious: Yes (Death, Hospitalization, Other)
  Sender: FDA-Public Use
  Company Number: FR-BRISTOL-MYERS SQUIBB COMPANY-BMS-2017-010291

PATIENT
  Age: 61 Year
  Sex: Male

DRUGS (4)
  1. ALKERAN [Suspect]
     Active Substance: MELPHALAN
     Indication: B-CELL LYMPHOMA
     Dosage: 237 MG, QD
     Route: 065
     Dates: start: 20160328
  2. BICNU [Suspect]
     Active Substance: CARMUSTINE
     Indication: B-CELL LYMPHOMA
     Dosage: 510 MG, UNK
     Route: 065
     Dates: start: 20160323
  3. CYTARABINE ACCORD [Suspect]
     Active Substance: CYTARABINE
     Indication: B-CELL LYMPHOMA
     Dosage: 680 MG, QD
     Route: 065
     Dates: start: 20160324, end: 20160324
  4. ETOPOPHOS [Suspect]
     Active Substance: ETOPOSIDE PHOSPHATE
     Indication: B-CELL LYMPHOMA
     Dosage: 340 MG, QD
     Route: 042

REACTIONS (4)
  - Bone marrow failure [Fatal]
  - Enterococcal sepsis [Fatal]
  - Influenza [Fatal]
  - Respiratory distress [Fatal]

NARRATIVE: CASE EVENT DATE: 20160329
